FAERS Safety Report 8398516-9 (Version None)
Quarter: 2012Q2

REPORT INFORMATION
  Report Type: 
  Country: None (occurrence: None)
  Receive Date: 20120531
  Receipt Date: 20120521
  Transmission Date: 20120825
  Serious: Yes (Death)
  Sender: FDA-Public Use
  Company Number: CZ-ALEXION PHARMACEUTICALS INC.-A201201026

PATIENT
  Sex: Female

DRUGS (1)
  1. SOLIRIS [Suspect]
     Indication: HAEMOLYTIC URAEMIC SYNDROME
     Dosage: 900 MG, X2 DOSES
     Route: 042
     Dates: start: 20120428, end: 20120505

REACTIONS (2)
  - CONDITION AGGRAVATED [None]
  - MULTI-ORGAN FAILURE [None]
